FAERS Safety Report 6763874-5 (Version None)
Quarter: 2010Q2

REPORT INFORMATION
  Report Type: 
  Country: None (occurrence: None)
  Receive Date: 20100610
  Receipt Date: 20100607
  Transmission Date: 20101027
  Serious: Yes (Hospitalization)
  Sender: FDA-Public Use
  Company Number: US-BRISTOL-MYERS SQUIBB COMPANY-15137706

PATIENT
  Age: 57 Year
  Sex: Female
  Weight: 66 kg

DRUGS (4)
  1. ERBITUX [Suspect]
     Indication: NON-SMALL CELL LUNG CANCER
     Dosage: 400MG/M2 DAY1 250MG/M2 DAY 8,15,22,29,36,43,50 TOTAL NO COURSES:8
     Dates: start: 20100419
  2. CARBOPLATIN [Suspect]
     Indication: NON-SMALL CELL LUNG CANCER
     Dosage: AUC=2  DAY 8,15,22,29,36,43,50 TOTAL NO COURSES:8
     Dates: start: 20100426
  3. TAXOL [Suspect]
     Indication: NON-SMALL CELL LUNG CANCER
     Dosage: DAY 8,15,22,29,36,43,50 TOTAL NO COURSES:8
     Dates: start: 20100426
  4. RADIATION THERAPY [Suspect]
     Indication: NON-SMALL CELL LUNG CANCER
     Dosage: 1DF=74GY 5X WK FOR 7.5WK DAY 8-12,15-19,22-26,29-33,36-38,43-47,50,54,57-59.

REACTIONS (4)
  - FATIGUE [None]
  - NEUTROPHIL COUNT DECREASED [None]
  - PLATELET COUNT DECREASED [None]
  - WHITE BLOOD CELL COUNT DECREASED [None]
